FAERS Safety Report 5293932-6 (Version None)
Quarter: 2007Q2

REPORT INFORMATION
  Report Type: 
  Country: None (occurrence: None)
  Receive Date: 20070411
  Receipt Date: 20070330
  Transmission Date: 20071010
  Serious: Yes (Other)
  Sender: FDA-Public Use
  Company Number: US-PFIZER INC-2007026920

PATIENT
  Age: 39 Year
  Sex: Female
  Weight: 80.7 kg

DRUGS (1)
  1. CHANTIX [Suspect]
     Indication: SMOKING CESSATION THERAPY
     Route: 065
     Dates: start: 20070201, end: 20070325

REACTIONS (7)
  - AURICULAR SWELLING [None]
  - DERMATITIS [None]
  - DYSPNOEA [None]
  - EAR DISORDER [None]
  - PHARYNGEAL OEDEMA [None]
  - PRURITUS [None]
  - RASH [None]
